FAERS Safety Report 14854137 (Version 2)
Quarter: 2018Q3

REPORT INFORMATION
  Report Type: Spontaneous
  Country: US (occurrence: US)
  Receive Date: 20180507
  Receipt Date: 20180918
  Transmission Date: 20181010
  Serious: Yes (Hospitalization, Other)
  Sender: FDA-Public Use
  Company Number: US-BAYER-2018-083764

PATIENT
  Age: 28 Year
  Weight: 56.69 kg

DRUGS (2)
  1. MIRENA [Suspect]
     Active Substance: LEVONORGESTREL
     Indication: CONTRACEPTION
     Dosage: 20 MCG/24HR, CONT
     Route: 015
     Dates: start: 20151002, end: 20180221
  2. MIRENA [Suspect]
     Active Substance: LEVONORGESTREL
     Indication: CONTRACEPTION
     Dosage: 20 MCG/24HR, CONT
     Route: 015
     Dates: start: 20180626

REACTIONS (5)
  - Pelvic inflammatory disease [None]
  - Pelvic pain [None]
  - Gonorrhoea [None]
  - Cervicitis gonococcal [None]
  - Pyrexia [None]

NARRATIVE: CASE EVENT DATE: 20180221
